FAERS Safety Report 21085684 (Version 1)
Quarter: 2022Q3

REPORT INFORMATION
  Report Type: Report from Study
  Country: US (occurrence: US)
  Receive Date: 20220715
  Receipt Date: 20220715
  Transmission Date: 20221027
  Serious: Yes (Other)
  Sender: FDA-Public Use
  Company Number: US-BIOGEN-2022BI01139132

PATIENT
  Age: 67 Year
  Sex: Female

DRUGS (1)
  1. VUMERITY [Suspect]
     Active Substance: DIROXIMEL FUMARATE
     Indication: Multiple sclerosis
     Dosage: TAKE 1 CAPSULES (462MG) BY MOUTH TWICE DAILY?STARTING DOSE
     Route: 050
     Dates: start: 20220112

REACTIONS (2)
  - Colitis ulcerative [Unknown]
  - Underdose [Unknown]

NARRATIVE: CASE EVENT DATE: 20220112
